FAERS Safety Report 10915704 (Version 1)
Quarter: 2015Q1

REPORT INFORMATION
  Report Type: Spontaneous
  Country: US (occurrence: None)
  Receive Date: 20150311
  Receipt Date: 20150311
  Transmission Date: 20150721
  Serious: Yes (Other)
  Sender: FDA-Public Use
  Company Number: None

PATIENT
  Age: 15 Year
  Sex: Male
  Weight: 75.75 kg

DRUGS (1)
  1. CLOZAPINE. [Suspect]
     Active Substance: CLOZAPINE
     Indication: BIPOLAR DISORDER
     Dosage: 50 MG MORNING 250 MG EVENING
     Route: 048
     Dates: start: 20141227, end: 20150310

REACTIONS (10)
  - Cough [None]
  - Chest pain [None]
  - Vomiting [None]
  - Dyspnoea [None]
  - Electrocardiogram abnormal [None]
  - Cardiomyopathy [None]
  - Gastrooesophageal reflux disease [None]
  - Asthma [None]
  - Myocarditis [None]
  - Fatigue [None]

NARRATIVE: CASE EVENT DATE: 20150309
